FAERS Safety Report 25402457 (Version 1)
Quarter: 2025Q2

REPORT INFORMATION
  Report Type: Spontaneous
  Country: TW (occurrence: TW)
  Receive Date: 20250605
  Receipt Date: 20250605
  Transmission Date: 20250716
  Serious: Yes (Death)
  Sender: PFIZER
  Company Number: TW-PFIZER INC-PV202500067189

PATIENT
  Age: 64 Year
  Sex: Male
  Weight: 51 kg

DRUGS (6)
  1. IRINOTECAN HYDROCHLORIDE [Suspect]
     Active Substance: IRINOTECAN HYDROCHLORIDE
     Route: 041
     Dates: start: 20250204, end: 20250318
  2. ERBITUX [Suspect]
     Active Substance: CETUXIMAB
     Route: 041
     Dates: start: 20240910
  3. ERBITUX [Suspect]
     Active Substance: CETUXIMAB
     Dosage: 400 MG, QW
     Dates: start: 20240916, end: 20250127
  4. ERBITUX [Suspect]
     Active Substance: CETUXIMAB
     Dates: start: 20250204
  5. ERBITUX [Suspect]
     Active Substance: CETUXIMAB
     Dates: start: 20250211
  6. ERBITUX [Suspect]
     Active Substance: CETUXIMAB
     Dosage: 400 MG, QW
     Dates: start: 20250218, end: 20250325

REACTIONS (7)
  - Interstitial lung disease [Fatal]
  - Pulmonary fibrosis [Fatal]
  - Respiratory failure [Fatal]
  - Pyrexia [Unknown]
  - Chronic obstructive pulmonary disease [Unknown]
  - Emphysema [Unknown]
  - Respiratory fatigue [Unknown]

NARRATIVE: CASE EVENT DATE: 20250330
